FAERS Safety Report 15170691 (Version 1)
Quarter: 2018Q3

REPORT INFORMATION
  Report Type: Spontaneous
  Country: US (occurrence: US)
  Receive Date: 20180622
  Receipt Date: 20180622
  Transmission Date: 20181010
  Serious: No
  Sender: FDA-Public Use
  Company Number: None

PATIENT
  Age: 65 Year
  Sex: Male

DRUGS (1)
  1. DAPTOMYCIN 500MG HOSPIRA [Suspect]
     Active Substance: DAPTOMYCIN
     Indication: OSTEOMYELITIS
     Route: 042
     Dates: start: 20180527

REACTIONS (5)
  - Pyrexia [None]
  - Myalgia [None]
  - Asthenia [None]
  - Chills [None]
  - Blood creatine phosphokinase decreased [None]

NARRATIVE: CASE EVENT DATE: 20180611
